FAERS Safety Report 22161721 (Version 1)
Quarter: 2023Q1

REPORT INFORMATION
  Report Type: Spontaneous
  Country: US (occurrence: US)
  Receive Date: 20230331
  Receipt Date: 20230331
  Transmission Date: 20230417
  Serious: Yes (Death, Life-Threatening)
  Sender: FDA-Public Use
  Company Number: US-BAYER-2023A038860

PATIENT
  Age: 13 Year
  Sex: Male
  Weight: 35.7 kg

DRUGS (9)
  1. VITRAKVI [Suspect]
     Active Substance: LAROTRECTINIB
     Indication: Undifferentiated sarcoma
     Dosage: 100 MG, BID
     Route: 048
  2. KEPPRA [Concomitant]
     Active Substance: LEVETIRACETAM
     Dosage: 1125 MG, BID
     Route: 048
  3. VITAMINS NOS [Concomitant]
     Active Substance: VITAMINS
     Dosage: 1 TABLET, BID
     Route: 048
  4. ASCORBIC ACID [Concomitant]
     Active Substance: ASCORBIC ACID
     Dosage: 500 MG, BID
     Route: 048
  5. VITAMIN D NOS [Concomitant]
     Active Substance: VITAMIN D NOS
     Dosage: 5000 U, QD
     Route: 048
  6. MENAQUINONE 6 [Concomitant]
     Active Substance: MENAQUINONE 6
     Dosage: 90 ?G, QD
     Route: 048
  7. VITAMIN B6 [Concomitant]
     Active Substance: PYRIDOXINE HYDROCHLORIDE
     Dosage: 25 MG, QD
     Route: 048
  8. TURKEY TAIL MUSHROOM [Concomitant]
     Dosage: 1 TABLESPOON, QD
     Route: 048
  9. ANNATTO TOCOTRIENOLS [Concomitant]
     Dosage: 125 MG, QD
     Route: 048

REACTIONS (3)
  - Haemorrhage intracranial [Fatal]
  - Metastases to central nervous system [Fatal]
  - Haemorrhage intracranial [Recovered/Resolved]

NARRATIVE: CASE EVENT DATE: 20230301
